FAERS Safety Report 8846881 (Version 1)
Quarter: 2012Q4

REPORT INFORMATION
  Report Type: Spontaneous
  Country: US (occurrence: None)
  Receive Date: 20121017
  Receipt Date: 20121017
  Transmission Date: 20130627
  Serious: No
  Sender: FDA-Public Use
  Company Number: None

PATIENT
  Age: 86 Year
  Sex: Female
  Weight: 81.65 kg

DRUGS (1)
  1. FLUTICASONE PROPIONATE [Suspect]
     Dates: start: 20120601, end: 20120901

REACTIONS (1)
  - Bone pain [None]
